FAERS Safety Report 9720590 (Version 1)
Quarter: 2013Q4

REPORT INFORMATION
  Report Type: Spontaneous
  Country: CO (occurrence: CO)
  Receive Date: 20131129
  Receipt Date: 20131129
  Transmission Date: 20140711
  Serious: Yes (Hospitalization)
  Sender: FDA-Public Use
  Company Number: CO-AMGEN-COLSP2013084394

PATIENT
  Age: 38 Year
  Sex: Female

DRUGS (3)
  1. ENBREL [Suspect]
     Indication: PSORIATIC ARTHROPATHY
     Dosage: 50 MG, WEEKLY
     Route: 058
     Dates: start: 201211, end: 201305
  2. LEFLUNOMIDE [Suspect]
     Indication: PSORIATIC ARTHROPATHY
     Dosage: ONE TABLET OF 20 MG, UNK
     Route: 065
     Dates: start: 201305
  3. ACETAMINOPHEN [Concomitant]
     Indication: PAIN
     Dosage: 4 TO 6 TABLETS OF 500MG (3000 MG), 1X/DAY
     Route: 048
     Dates: start: 2005

REACTIONS (6)
  - Tuberculin test positive [Unknown]
  - Decreased immune responsiveness [Unknown]
  - Pharyngitis [Unknown]
  - Rhinitis [Unknown]
  - Ear infection [Unknown]
  - Sinusitis [Unknown]
